FAERS Safety Report 9546463 (Version 1)
Quarter: 2013Q3

REPORT INFORMATION
  Report Type: Spontaneous
  Country: DE (occurrence: DE)
  Receive Date: 20130923
  Receipt Date: 20130923
  Transmission Date: 20140515
  Serious: Yes (Hospitalization, Other)
  Sender: FDA-Public Use
  Company Number: DE-ACTAVISPR-2013-16525

PATIENT
  Sex: 0

DRUGS (6)
  1. LAMOTRIGINE (UNKNOWN) [Suspect]
     Indication: DEPRESSION
     Dosage: 200 MG, DAILY
     Route: 064
     Dates: start: 20090619, end: 20100316
  2. PHENOBARBITAL (UNKNOWN) [Suspect]
     Indication: DRUG WITHDRAWAL SYNDROME NEONATAL
     Dosage: 5 MG/KG OF BIRTH WEIGHT, DAILY
     Route: 042
  3. TREVILOR [Suspect]
     Indication: DEPRESSION
     Dosage: 225 MG, DAILY
     Route: 064
     Dates: start: 20090619, end: 20100316
  4. PROMETHAZIN NEURAXPHARM [Suspect]
     Indication: OBSESSIVE-COMPULSIVE DISORDER
     Dosage: 25 MG, DAILY
     Route: 064
     Dates: start: 20090616, end: 20100316
  5. L-THYROXIN [Concomitant]
     Indication: HYPOTHYROIDISM
     Dosage: 50 MG, DAILY
     Route: 064
     Dates: start: 20090619, end: 20100316
  6. FOLIC ACID [Concomitant]
     Indication: PROPHYLAXIS OF NEURAL TUBE DEFECT
     Dosage: 0.8 MG, DAILY
     Route: 064
     Dates: start: 20090701

REACTIONS (5)
  - Neonatal respiratory distress syndrome [Recovered/Resolved]
  - Drug withdrawal syndrome neonatal [Recovered/Resolved]
  - Bradycardia neonatal [Recovered/Resolved]
  - Anticonvulsant drug level above therapeutic [Recovered/Resolved]
  - Foetal exposure during pregnancy [Recovered/Resolved]
